FAERS Safety Report 6401913-1 (Version None)
Quarter: 2009Q4

REPORT INFORMATION
  Report Type: 
  Country: None (occurrence: None)
  Receive Date: 20091015
  Receipt Date: 20091012
  Transmission Date: 20100525
  Serious: Yes (Other)
  Sender: FDA-Public Use
  Company Number: A0767990A

PATIENT
  Sex: Male
  Weight: 3.1 kg

DRUGS (4)
  1. LAMOTRIGINE [Suspect]
     Indication: BIPOLAR DISORDER
     Dosage: 200MG PER DAY
  2. ABILIFY [Concomitant]
     Dosage: 15MG PER DAY
  3. CYMBALTA [Concomitant]
     Dosage: 120MG PER DAY
  4. CONCERTA [Concomitant]

REACTIONS (2)
  - AUTISM [None]
  - DRUG EXPOSURE DURING PREGNANCY [None]
